FAERS Safety Report 20505095 (Version 2)
Quarter: 2022Q1

REPORT INFORMATION
  Report Type: Spontaneous
  Country: US (occurrence: US)
  Receive Date: 20220223
  Receipt Date: 20220224
  Transmission Date: 20220423
  Serious: No
  Sender: FDA-Public Use
  Company Number: US-ELI_LILLY_AND_COMPANY-US202202009535

PATIENT
  Sex: Female

DRUGS (3)
  1. ZYPREXA RELPREVV [Suspect]
     Active Substance: OLANZAPINE PAMOATE
     Indication: Affective disorder
     Dosage: 300 MG, OTHER (EVERY TWO WEEKS)
     Route: 030
     Dates: start: 20220126
  2. ZYPREXA RELPREVV [Suspect]
     Active Substance: OLANZAPINE PAMOATE
     Indication: Affective disorder
     Dosage: 300 MG, OTHER (EVERY TWO WEEKS)
     Route: 030
     Dates: start: 20220126
  3. ZYPREXA RELPREVV [Suspect]
     Active Substance: OLANZAPINE PAMOATE
     Indication: Affective disorder
     Dosage: 300 MG, OTHER (EVERY TWO WEEKS)
     Route: 030
     Dates: start: 20220126

REACTIONS (2)
  - Injection site pustule [Not Recovered/Not Resolved]
  - Unevaluable event [Unknown]
